FAERS Safety Report 5840381-5 (Version None)
Quarter: 2008Q3

REPORT INFORMATION
  Report Type: 
  Country: None (occurrence: None)
  Receive Date: 20080811
  Receipt Date: 20080729
  Transmission Date: 20090109
  Serious: Yes (Life-Threatening, Hospitalization, Other)
  Sender: FDA-Public Use
  Company Number: DE-PURDUE-DEU_2008_0004533

PATIENT
  Age: 62 Year
  Sex: Male

DRUGS (10)
  1. OXYGESIC [Suspect]
     Indication: PAIN
     Dosage: 20 MG, TID
     Route: 048
     Dates: start: 20080301
  2. OXYGESIC [Suspect]
     Dosage: 30 MG, BID
     Route: 048
     Dates: end: 20080201
  3. LYRICA [Concomitant]
  4. ATENOLOL [Concomitant]
  5. OMEP [Concomitant]
  6. ISDN [Concomitant]
  7. MOLSIDOMINE [Concomitant]
  8. AMITRIPTYLINE HCL [Concomitant]
  9. CITALOPRAM HYDROBROMIDE [Concomitant]
  10. METAMIZOLE [Concomitant]

REACTIONS (5)
  - CARDIAC ARREST [None]
  - DRUG WITHDRAWAL SYNDROME [None]
  - PULMONARY EMBOLISM [None]
  - RENAL FAILURE ACUTE [None]
  - THERAPEUTIC AGENT TOXICITY [None]
